FAERS Safety Report 7808346-1 (Version None)
Quarter: 2011Q4

REPORT INFORMATION
  Report Type: 
  Country: None (occurrence: None)
  Receive Date: 20111012
  Receipt Date: 20110930
  Transmission Date: 20120403
  Serious: Yes (Other)
  Sender: FDA-Public Use
  Company Number: US-ELI_LILLY_AND_COMPANY-US201109002011

PATIENT
  Sex: Male
  Weight: 29.1 kg

DRUGS (3)
  1. HUMATROPE [Suspect]
     Dosage: 0.9 MG, SEVEN TIMES A WEEK
     Route: 058
     Dates: start: 20110927
  2. DEFLAZACORT [Concomitant]
     Indication: DUCHENNE MUSCULAR DYSTROPHY
  3. HUMATROPE [Suspect]
     Indication: GROWTH RETARDATION
     Dosage: 0.9 MG, SEVEN TIMES A WEEK
     Route: 058
     Dates: start: 20090903, end: 20100917

REACTIONS (1)
  - BENIGN INTRACRANIAL HYPERTENSION [None]
